FAERS Safety Report 14036963 (Version 2)
Quarter: 2017Q4

REPORT INFORMATION
  Report Type: Report from Study
  Country: US (occurrence: US)
  Receive Date: 20171004
  Receipt Date: 20171006
  Transmission Date: 20180321
  Serious: Yes (Hospitalization, Other)
  Sender: FDA-Public Use
  Company Number: US-AMGEN-USASL2017146279

PATIENT
  Age: 44 Year
  Sex: Male

DRUGS (1)
  1. NPLATE [Suspect]
     Active Substance: ROMIPLOSTIM
     Indication: IMMUNE THROMBOCYTOPENIC PURPURA
     Dosage: UNK UNK, Q3WK
     Route: 065

REACTIONS (14)
  - Feeling abnormal [Recovering/Resolving]
  - Feeding disorder [Recovering/Resolving]
  - Tremor [Unknown]
  - Unevaluable event [Unknown]
  - Pyrexia [Unknown]
  - Malaise [Unknown]
  - Vomiting [Recovering/Resolving]
  - Visual impairment [Unknown]
  - Dyspnoea [Unknown]
  - Chest X-ray abnormal [Unknown]
  - Rash [Unknown]
  - Liver disorder [Unknown]
  - Muscle spasms [Unknown]
  - Bone pain [Unknown]

NARRATIVE: CASE EVENT DATE: 20170913
